FAERS Safety Report 9228471 (Version 1)
Quarter: 2013Q2

REPORT INFORMATION
  Report Type: Spontaneous
  Country: US (occurrence: None)
  Receive Date: 20130411
  Receipt Date: 20130411
  Transmission Date: 20140414
  Serious: No
  Sender: FDA-Public Use
  Company Number: None

PATIENT
  Sex: Female

DRUGS (1)
  1. AUBAGIO [Suspect]
     Dosage: 14MG  DAILY  ORAL?01/21/2013 TO ABOUNT A MONTH AGO
     Route: 048
     Dates: start: 20130121

REACTIONS (1)
  - Alopecia [None]
